FAERS Safety Report 9139562 (Version 1)
Quarter: 2013Q1

REPORT INFORMATION
  Report Type: Spontaneous
  Country: US (occurrence: US)
  Receive Date: 20130305
  Receipt Date: 20130305
  Transmission Date: 20140127
  Serious: Yes (Other)
  Sender: FDA-Public Use
  Company Number: US-PFIZER INC-2013075053

PATIENT
  Sex: Female
  Weight: 140 kg

DRUGS (8)
  1. LYRICA [Suspect]
     Indication: NEUROPATHY PERIPHERAL
     Dosage: 150 MG, 3X/DAY
     Route: 048
     Dates: start: 201109
  2. LYRICA [Suspect]
     Indication: INTERVERTEBRAL DISC DISORDER
  3. LYRICA [Suspect]
     Indication: BACK PAIN
  4. LYRICA [Suspect]
     Indication: BACK DISORDER
  5. CYMBALTA [Suspect]
     Indication: NEUROPATHY PERIPHERAL
     Dosage: UNK
     Dates: start: 2011
  6. CYMBALTA [Suspect]
     Indication: INTERVERTEBRAL DISC DISORDER
  7. CYMBALTA [Suspect]
     Indication: BACK PAIN
  8. CYMBALTA [Suspect]
     Indication: BACK DISORDER

REACTIONS (3)
  - Suicidal ideation [Unknown]
  - Drug ineffective [Unknown]
  - Back disorder [Unknown]
